FAERS Safety Report 9394022 (Version 2)
Quarter: 2013Q3

REPORT INFORMATION
  Report Type: Spontaneous
  Country: IT (occurrence: IT)
  Receive Date: 20130710
  Receipt Date: 20130819
  Transmission Date: 20140515
  Serious: Yes (Hospitalization)
  Sender: FDA-Public Use
  Company Number: IT-ELI_LILLY_AND_COMPANY-IT201307000087

PATIENT
  Age: 64 Year
  Sex: Male

DRUGS (13)
  1. GEMCITABINE HYDROCHLORIDE [Suspect]
     Indication: PANCREATIC CARCINOMA
     Dosage: 1900 MG, OTHER
     Route: 042
     Dates: start: 20121101, end: 20130227
  2. CARBOPLATIN [Suspect]
     Indication: PANCREATIC CARCINOMA
     Dosage: 600 MG, OTHER
     Route: 042
     Dates: start: 20121101, end: 20130227
  3. DILZENE [Concomitant]
  4. IBUSTRIN                           /00730701/ [Concomitant]
     Dosage: 200 MG, UNKNOWN
  5. DEPONIT [Concomitant]
     Dosage: 05 MG, UNKNOWN
     Route: 062
  6. TAREG [Concomitant]
     Dosage: 80 MG, UNKNOWN
  7. FLIXOTIDE [Concomitant]
     Dosage: UNK
  8. SPIRIVA RESPIMAT [Concomitant]
  9. CHLORDIAZEPOXIDE [Concomitant]
     Route: 048
  10. CLORAZEPATE [Concomitant]
  11. PARACODINA                         /00063002/ [Concomitant]
  12. TACHIDOL [Concomitant]
     Route: 048
  13. ANTRA                              /00661201/ [Concomitant]

REACTIONS (3)
  - Epistaxis [Recovering/Resolving]
  - Thrombocytopenia [Recovered/Resolved]
  - Anaemia [Recovering/Resolving]
